FAERS Safety Report 8735027 (Version 2)
Quarter: 2012Q4

REPORT INFORMATION
  Report Type: 
  Country: NL (occurrence: NL)
  Receive Date: 20120821
  Receipt Date: 20121119
  Transmission Date: 20130627
  Serious: Yes (Hospitalization, Other)
  Sender: FDA-Public Use
  Company Number: NL-PFIZER INC-2012201080

PATIENT
  Age: 63 Year
  Sex: Male
  Weight: 94.9 kg

DRUGS (9)
  1. GENOTROPIN [Suspect]
     Dosage: 0.2 mg, 7/wk
     Route: 058
     Dates: start: 20011024
  2. CORTISONE ACETATE [Concomitant]
     Indication: BLOOD CORTICOTROPHIN DECREASED
     Dosage: UNK
     Dates: start: 19920508
  3. LEVOTHYROXINE [Concomitant]
     Indication: BLOOD THYROID STIMULATING HORMONE DECREASED
     Dosage: UNK
     Dates: start: 19920626
  4. LEVOTHYROXINE [Concomitant]
     Indication: PRIMARY HYPOTHYROIDISM
  5. TESTOSTERONE [Concomitant]
     Indication: LUTEINISING HORMONE DECREASED
     Dosage: UNK
     Dates: start: 19920626
  6. TESTOSTERONE [Concomitant]
     Indication: FOLLICLE STIMULATING HORMONE DECREASED
  7. TESTOSTERONE [Concomitant]
     Indication: TESTICULAR HYPOGONADISM
  8. BETAHISTINE [Concomitant]
     Dosage: UNK
     Dates: start: 20040707
  9. SIMVASTATIN [Concomitant]
     Indication: ARTERIOSCLEROSIS
     Dosage: UNK
     Dates: start: 20050104

REACTIONS (2)
  - Pneumonia [Recovered/Resolved]
  - Myocardial infarction [Recovered/Resolved]
